FAERS Safety Report 5307247-0 (Version None)
Quarter: 2007Q2

REPORT INFORMATION
  Report Type: 
  Country: None (occurrence: None)
  Receive Date: 20070425
  Receipt Date: 20070423
  Transmission Date: 20071010
  Serious: Yes (Other)
  Sender: FDA-Public Use
  Company Number: US-GLAXOSMITHKLINE-A0648154A

PATIENT
  Age: 70 Year
  Sex: Male

DRUGS (13)
  1. COREG [Suspect]
     Dosage: 6.25MG PER DAY
     Route: 048
     Dates: start: 20061201
  2. GLUCOTROL [Concomitant]
  3. PLAVIX [Concomitant]
  4. VYTORIN [Concomitant]
  5. VASOTEC [Concomitant]
  6. LASIX [Concomitant]
  7. SPIRONOLACTONE [Concomitant]
  8. POTASSIUM CL [Concomitant]
  9. LANOXIN [Concomitant]
  10. COUMADIN [Concomitant]
  11. XANAX [Concomitant]
  12. AMIODARONE [Concomitant]
  13. MAGNESIUM [Concomitant]

REACTIONS (6)
  - BLOOD GLUCOSE INCREASED [None]
  - CARDIOACTIVE DRUG LEVEL INCREASED [None]
  - DIABETES MELLITUS INADEQUATE CONTROL [None]
  - DRUG INTERACTION [None]
  - MYOCARDIAL INFARCTION [None]
  - PROTHROMBIN TIME ABNORMAL [None]
